FAERS Safety Report 21680047 (Version 9)
Quarter: 2023Q4

REPORT INFORMATION
  Report Type: Report from Study
  Country: CA (occurrence: CA)
  Receive Date: 20221205
  Receipt Date: 20231227
  Transmission Date: 20240110
  Serious: Yes (Other)
  Sender: FDA-Public Use
  Company Number: CA-JNJFOC-20221200971

PATIENT
  Age: 14 Year
  Sex: Female
  Weight: 44 kg

DRUGS (4)
  1. REMICADE [Suspect]
     Active Substance: INFLIXIMAB
     Indication: Crohn^s disease
     Dosage: PATIENT RECEIVED 6TH REMICADE INFUSION ON 22-FEB-2023. PARTIAL HARVEY-BRADSHAW COMPLETED
     Route: 041
     Dates: start: 20220824
  2. REMICADE [Suspect]
     Active Substance: INFLIXIMAB
     Dosage: THERAPY START DATE: 24-AUG-2022?ON 16-OCT-2023, THE PATIENT RECEIVED 12TH INFLIXIMAB, RECOMBINANT IN
     Route: 041
  3. REMICADE [Suspect]
     Active Substance: INFLIXIMAB
     Route: 041
  4. METHOTREXATE [Concomitant]
     Active Substance: METHOTREXATE
     Indication: Product used for unknown indication
     Route: 048

REACTIONS (12)
  - Crohn^s disease [Not Recovered/Not Resolved]
  - Mass [Not Recovered/Not Resolved]
  - Skin discolouration [Unknown]
  - Scab [Unknown]
  - Vein collapse [Unknown]
  - Poor venous access [Recovered/Resolved]
  - Discomfort [Unknown]
  - Food intolerance [Unknown]
  - Dehydration [Unknown]
  - Abdominal discomfort [Unknown]
  - Drug level decreased [Unknown]
  - Off label use [Unknown]

NARRATIVE: CASE EVENT DATE: 20221101
